FAERS Safety Report 9002623 (Version 2)
Quarter: 2013Q1

REPORT INFORMATION
  Report Type: Report from Study
  Country: HU (occurrence: HU)
  Receive Date: 20130107
  Receipt Date: 20130116
  Transmission Date: 20140127
  Serious: Yes (Hospitalization)
  Sender: FDA-Public Use
  Company Number: HU-ASTELLAS-2013US000147

PATIENT
  Age: 66 Year
  Sex: Male
  Weight: 52 kg

DRUGS (9)
  1. BLINDED ERLOTINIB TABLET [Suspect]
     Indication: NON-SMALL CELL LUNG CANCER
     Dosage: 50 MG, UID/QD
     Route: 048
     Dates: start: 20120308
  2. FENTANYL [Concomitant]
     Indication: PAIN
     Dosage: UNK
     Route: 065
     Dates: start: 201111
  3. PANTOPRAZOLE [Concomitant]
     Indication: DUODENAL ULCER
     Dosage: UNK
     Route: 065
  4. LOPERAMIDE [Concomitant]
     Indication: DIARRHOEA
     Dosage: UNK
     Route: 065
     Dates: start: 20120311
  5. DOXYCYCLIN                         /00055701/ [Concomitant]
     Indication: RASH
     Dosage: UNK
     Route: 065
     Dates: start: 20120418
  6. HYDROCORTISONE [Concomitant]
     Indication: RASH
     Dosage: UNK
     Route: 065
     Dates: start: 20120418
  7. CERUCAL [Concomitant]
     Indication: NAUSEA
     Dosage: UNK
     Route: 065
     Dates: start: 20120509
  8. FRAXIPARINE                        /01437701/ [Concomitant]
     Indication: PULMONARY EMBOLISM
     Dosage: UNK
     Route: 065
     Dates: start: 20121003
  9. FENOTEROL HYDROBROMIDE W/IPRATROPIUM BROMIDE [Concomitant]
     Indication: PRODUCT USED FOR UNKNOWN INDICATION
     Dosage: UNK
     Route: 065

REACTIONS (1)
  - Pulmonary embolism [Not Recovered/Not Resolved]
